FAERS Safety Report 6856455-6 (Version None)
Quarter: 2010Q3

REPORT INFORMATION
  Report Type: 
  Country: None (occurrence: None)
  Receive Date: 20100716
  Receipt Date: 20100716
  Transmission Date: 20110219
  Serious: Yes (Hospitalization)
  Sender: FDA-Public Use
  Company Number: None

PATIENT
  Age: 72 Year
  Sex: Male
  Weight: 74.3 kg

DRUGS (1)
  1. LINEZOLID [Suspect]
     Indication: CHOLANGITIS
     Dosage: 600 MG BID PO
     Route: 048
     Dates: start: 20100421, end: 20100504

REACTIONS (5)
  - ANAEMIA [None]
  - DRUG TOXICITY [None]
  - LACTIC ACIDOSIS [None]
  - PANCYTOPENIA [None]
  - THROMBOCYTOPENIA [None]
